FAERS Safety Report 4386949-7 (Version None)
Quarter: 2004Q2

REPORT INFORMATION
  Report Type: 
  Country: None (occurrence: None)
  Receive Date: 20040630
  Receipt Date: 20040107
  Transmission Date: 20050107
  Serious: Yes (Hospitalization, Other)
  Sender: FDA-Public Use
  Company Number: CH-BRISTOL-MYERS SQUIBB COMPANY-12506408

PATIENT
  Age: 39 Year
  Sex: Male

DRUGS (3)
  1. GLUCOPHAGE [Suspect]
     Route: 048
     Dates: start: 20021101, end: 20030601
  2. XENICAL [Suspect]
     Route: 048
     Dates: start: 19990101
  3. NORVASC [Suspect]
     Route: 048
     Dates: start: 20020101

REACTIONS (1)
  - APHONIA [None]
